FAERS Safety Report 8457094-6 (Version None)
Quarter: 2012Q2

REPORT INFORMATION
  Report Type: 
  Country: None (occurrence: None)
  Receive Date: 20120614
  Receipt Date: 20120605
  Transmission Date: 20120825
  Serious: Yes (Other)
  Sender: FDA-Public Use
  Company Number: US-2012-10686

PATIENT
  Age: 64 Year
  Sex: Female

DRUGS (4)
  1. IMATINIB MESYLATE [Suspect]
     Indication: CHRONIC MYELOID LEUKAEMIA
  2. BUSULFAN [Suspect]
     Indication: CHRONIC MYELOID LEUKAEMIA
  3. HYDROXYUREA [Suspect]
     Indication: CHRONIC MYELOID LEUKAEMIA
  4. NILOTINIB [Suspect]
     Indication: CHRONIC MYELOID LEUKAEMIA

REACTIONS (3)
  - ANAEMIA [None]
  - THROMBOCYTOPENIA [None]
  - CHRONIC MYELOID LEUKAEMIA [None]
